FAERS Safety Report 12860223 (Version 3)
Quarter: 2016Q4

REPORT INFORMATION
  Report Type: Report from Study
  Country: DE (occurrence: DE)
  Receive Date: 20161019
  Receipt Date: 20161115
  Transmission Date: 20170207
  Serious: Yes (Hospitalization, Other)
  Sender: FDA-Public Use
  Company Number: DE-ROCHE-1842880

PATIENT
  Sex: Male
  Weight: 172 kg

DRUGS (6)
  1. RANIBIZUMAB [Suspect]
     Active Substance: RANIBIZUMAB
     Dosage: 0.5 MG, 1X (LEFT EYE)
     Route: 031
     Dates: start: 20151106
  2. RANIBIZUMAB [Suspect]
     Active Substance: RANIBIZUMAB
     Dosage: 0.5 MG, 1X (LEFT EYE)
     Route: 031
     Dates: start: 20151204
  3. RANIBIZUMAB [Suspect]
     Active Substance: RANIBIZUMAB
     Dosage: 0.5 MG, 1X (RIGHT EYE)
     Route: 031
     Dates: start: 20151113, end: 20151113
  4. RANIBIZUMAB [Suspect]
     Active Substance: RANIBIZUMAB
     Dosage: UNK
     Route: 031
     Dates: start: 20160925, end: 20160925
  5. RANIBIZUMAB [Suspect]
     Active Substance: RANIBIZUMAB
     Indication: VISUAL IMPAIRMENT
     Dosage: 0.5 MG, 1X (LEFT EYE)
     Route: 031
     Dates: start: 20150925
  6. RANIBIZUMAB [Suspect]
     Active Substance: RANIBIZUMAB
     Indication: DIABETIC RETINAL OEDEMA
     Dosage: 0.5 MG, 1X (RIGHT EYE)
     Route: 031
     Dates: start: 20151009

REACTIONS (3)
  - Visual acuity reduced [Unknown]
  - Fungal infection [Unknown]
  - Corneal disorder [Recovered/Resolved with Sequelae]

NARRATIVE: CASE EVENT DATE: 20151204
